FAERS Safety Report 17824358 (Version 1)
Quarter: 2020Q2

REPORT INFORMATION
  Report Type: Spontaneous
  Country: NO (occurrence: NO)
  Receive Date: 20200526
  Receipt Date: 20200526
  Transmission Date: 20200714
  Serious: Yes (Disabling)
  Sender: FDA-Public Use
  Company Number: NO-PFIZER INC-2020205839

PATIENT
  Age: 23 Year
  Sex: Female
  Weight: 46 kg

DRUGS (1)
  1. NEURONTIN [Suspect]
     Active Substance: GABAPENTIN
     Indication: NERVE INJURY
     Dosage: 300 MG, 2X/DAY
     Dates: start: 20171101, end: 20180111

REACTIONS (6)
  - Dizziness [Recovered/Resolved with Sequelae]
  - Dry mouth [Recovered/Resolved with Sequelae]
  - Anxiety [Recovered/Resolved with Sequelae]
  - Depression [Recovered/Resolved with Sequelae]
  - Fatigue [Recovered/Resolved with Sequelae]
  - Tinnitus [Recovered/Resolved with Sequelae]

NARRATIVE: CASE EVENT DATE: 20171101
